FAERS Safety Report 21415723 (Version 1)
Quarter: 2022Q4

REPORT INFORMATION
  Report Type: Report from Study
  Country: IT (occurrence: IT)
  Receive Date: 20221006
  Receipt Date: 20221006
  Transmission Date: 20230113
  Serious: Yes (Other)
  Sender: FDA-Public Use
  Company Number: IT-NOVARTISPH-NVSC2022IT223280

PATIENT
  Age: 56 Year
  Sex: Male

DRUGS (4)
  1. RUXOLITINIB [Suspect]
     Active Substance: RUXOLITINIB
     Indication: Polycythaemia vera
     Dosage: 10 MG, BID
     Route: 048
     Dates: start: 201807, end: 201901
  2. RUXOLITINIB [Suspect]
     Active Substance: RUXOLITINIB
     Dosage: 5 MG, BID
     Route: 048
     Dates: start: 201901
  3. IMATINIB [Suspect]
     Active Substance: IMATINIB
     Indication: Chronic myeloid leukaemia
     Dosage: 400 MG, QD
     Route: 048
     Dates: start: 202012
  4. IMATINIB [Suspect]
     Active Substance: IMATINIB
     Dosage: 300 MG, QD
     Route: 048

REACTIONS (7)
  - Chronic myeloid leukaemia [Unknown]
  - Pruritus [Unknown]
  - Weight decreased [Unknown]
  - Night sweats [Unknown]
  - Asthenia [Unknown]
  - Eye irritation [Unknown]
  - Platelet count decreased [Unknown]

NARRATIVE: CASE EVENT DATE: 20190101
